FAERS Safety Report 4998428-4 (Version None)
Quarter: 2006Q2

REPORT INFORMATION
  Report Type: 
  Country: None (occurrence: None)
  Receive Date: 20060510
  Receipt Date: 20060414
  Transmission Date: 20061013
  Serious: Yes (Other)
  Sender: FDA-Public Use
  Company Number: US-GLAXOSMITHKLINE-A0601831A

PATIENT
  Age: 48 Year
  Sex: Female
  Weight: 80.5 kg

DRUGS (3)
  1. LAMICTAL [Suspect]
     Indication: EPILEPSY
     Dosage: 150MG PER DAY
     Route: 048
     Dates: start: 20060309, end: 20060414
  2. VALPROIC ACID [Suspect]
     Indication: EPILEPSY
     Route: 065
     Dates: end: 20060307
  3. TEGRETOL [Concomitant]
     Indication: EPILEPSY
     Dosage: 300MG PER DAY
     Route: 048
     Dates: start: 20040101

REACTIONS (2)
  - HEPATIC ENZYME INCREASED [None]
  - HEPATIC LESION [None]
